FAERS Safety Report 20061976 (Version 1)
Quarter: 2021Q4

REPORT INFORMATION
  Report Type: Spontaneous
  Country: US (occurrence: US)
  Receive Date: 20211112
  Receipt Date: 20211112
  Transmission Date: 20220303
  Serious: No
  Sender: FDA-Public Use
  Company Number: US-drreddys-SPO/USA/21/0143606

PATIENT
  Age: 27 Year
  Sex: Male

DRUGS (1)
  1. ACCUTANE [Suspect]
     Active Substance: ISOTRETINOIN
     Indication: Product used for unknown indication
     Dosage: RMA ISSUE DATE: 7/12/2021 12:29:33 PM, 8/11/2021 2:27:40 PM, 9/8/2021 12:52:12 PM, 10/6/2021 12:46:2
     Dates: start: 20210712, end: 20211105

REACTIONS (1)
  - Fatigue [Unknown]
